FAERS Safety Report 5783195-7 (Version None)
Quarter: 2008Q2

REPORT INFORMATION
  Report Type: 
  Country: None (occurrence: None)
  Receive Date: 20080619
  Receipt Date: 20080619
  Transmission Date: 20081010
  Serious: No
  Sender: FDA-Public Use
  Company Number: None

PATIENT
  Sex: Male
  Weight: 28.5766 kg

DRUGS (2)
  1. SINGULAIR [Suspect]
     Indication: ASTHMA
     Dosage: 0NE TABLET AT BEDTIME PO
     Route: 048
     Dates: start: 20071030, end: 20080618
  2. SINGULAIR [Suspect]
     Indication: HYPERSENSITIVITY
     Dosage: 0NE TABLET AT BEDTIME PO
     Route: 048
     Dates: start: 20071030, end: 20080618

REACTIONS (7)
  - ABNORMAL BEHAVIOUR [None]
  - AGGRESSION [None]
  - DEPRESSION [None]
  - DISTURBANCE IN ATTENTION [None]
  - MOOD SWINGS [None]
  - PSYCHOMOTOR HYPERACTIVITY [None]
  - SUICIDAL IDEATION [None]
